FAERS Safety Report 17396900 (Version 1)
Quarter: 2020Q1

REPORT INFORMATION
  Report Type: Spontaneous
  Country: CM (occurrence: CM)
  Receive Date: 20200210
  Receipt Date: 20200210
  Transmission Date: 20200409
  Serious: Yes (Hospitalization, Other)
  Sender: FDA-Public Use
  Company Number: CM-009507513-2002CMR000806

PATIENT
  Age: 19 Year
  Sex: Female

DRUGS (1)
  1. MECTIZAN [Suspect]
     Active Substance: IVERMECTIN
     Dosage: ABOUT 400 PILLS, ONCE
     Route: 048

REACTIONS (3)
  - Toxicity to various agents [Recovered/Resolved]
  - Intentional overdose [Recovered/Resolved]
  - Poisoning deliberate [Recovered/Resolved]
